FAERS Safety Report 21034977 (Version 1)
Quarter: 2022Q3

REPORT INFORMATION
  Report Type: Spontaneous
  Country: US (occurrence: US)
  Receive Date: 20220701
  Receipt Date: 20220701
  Transmission Date: 20221027
  Serious: Yes (Death)
  Sender: FDA-Public Use
  Company Number: US-FreseniusKabi-FK202209300

PATIENT
  Age: 47 Year
  Sex: Female

DRUGS (6)
  1. HYDROMORPHONE [Suspect]
     Active Substance: HYDROMORPHONE
     Indication: Procedural pain
     Route: 042
  2. HYDROMORPHONE [Suspect]
     Active Substance: HYDROMORPHONE
     Dosage: 4 MG I.V. PUSH EVERY HOUR AS NEEDED?RECEIVED A TOTAL OF 12 MG OF I.V. PUSH
     Route: 042
  3. ACETAMINOPHEN\OXYCODONE HYDROCHLORIDE [Suspect]
     Active Substance: ACETAMINOPHEN\OXYCODONE HYDROCHLORIDE
     Indication: Procedural pain
     Dosage: 5-325 (PERCOCET AND OTHERS), 1-2 TABLETS EVERY 4 HOURS AS NEEDED FOR PAIN?AT 1603, THE NURSE ADMINIS
  4. ACETAMINOPHEN\OXYCODONE HYDROCHLORIDE [Suspect]
     Active Substance: ACETAMINOPHEN\OXYCODONE HYDROCHLORIDE
     Dosage: AT 1603, THE NURSE ADMINISTERED OXYCODONE-ACETAMINOPHEN 5-325 TWO TABLET
  5. CALCIUM CHLORIDE\POTASSIUM CHLORIDE\SODIUM LACTATE [Suspect]
     Active Substance: CALCIUM CHLORIDE\POTASSIUM CHLORIDE\SODIUM LACTATE
     Indication: Product used for unknown indication
     Dosage: 125 ML/HR
     Route: 042
  6. PROMETHAZINE [Suspect]
     Active Substance: PROMETHAZINE HYDROCHLORIDE
     Indication: Antiemetic supportive care
     Dosage: 25 MG?I.V. X 1 AS PRESCRIBED
     Route: 042

REACTIONS (1)
  - Medication error [Fatal]
